FAERS Safety Report 23586343 (Version 1)
Quarter: 2024Q1

REPORT INFORMATION
  Report Type: Spontaneous
  Country: FR (occurrence: FR)
  Receive Date: 20240301
  Receipt Date: 20240301
  Transmission Date: 20240410
  Serious: Yes (Hospitalization)
  Sender: FDA-Public Use
  Company Number: None

PATIENT
  Age: 31 Year
  Sex: Female

DRUGS (3)
  1. LIDOCAINE [Suspect]
     Active Substance: LIDOCAINE
     Indication: Joint injection
     Route: 042
     Dates: start: 20230130, end: 20230130
  2. IOPAMIRON 200 (200 mg iodine per mL), solution for injection [Concomitant]
     Indication: Joint injection
     Dosage: ROUTE: INTRAVENOUS
     Dates: start: 20230130, end: 20230130
  3. DIPROSTENE, suspension for injection in pre-filled syringe [Concomitant]
     Indication: Joint injection
     Dosage: INTRA-ARTICULAR
     Dates: start: 20230130, end: 20230130

REACTIONS (1)
  - Anaphylactic reaction [Recovered/Resolved]

NARRATIVE: CASE EVENT DATE: 20230130
